FAERS Safety Report 19701694 (Version 1)
Quarter: 2021Q3

REPORT INFORMATION
  Report Type: Spontaneous
  Country: DE (occurrence: DE)
  Receive Date: 20210813
  Receipt Date: 20210813
  Transmission Date: 20211014
  Serious: Yes (Other)
  Sender: FDA-Public Use
  Company Number: DE-BAUSCH-BL-2021-027105

PATIENT
  Age: 80 Year
  Sex: Male

DRUGS (10)
  1. PREDNISOLONE. [Suspect]
     Active Substance: PREDNISOLONE
     Indication: HYPOPITUITARISM
     Dosage: 1 DF (10 UNIT UNKNOWN) (START DATE: 31 MAR (YEAR NOT SPECIFIED)
     Route: 065
  2. METFORMIN [Concomitant]
     Active Substance: METFORMIN HYDROCHLORIDE
     Indication: TYPE 2 DIABETES MELLITUS
     Dosage: UNK
     Dates: start: 20170331
  3. METOPROLOL. [Concomitant]
     Active Substance: METOPROLOL
     Indication: HYPERTENSION
     Dosage: 2 DF (47.5 UNIT UNKNOWN) (START DATE: 31 MAR (YEAR NOT SPECIFIED)
     Dates: start: 20170331
  4. SIMVASTATIN. [Concomitant]
     Active Substance: SIMVASTATIN
     Indication: HYPERCHOLESTEROLAEMIA
     Dosage: UNK
     Dates: start: 20170331
  5. ALLOPURINOL. [Concomitant]
     Active Substance: ALLOPURINOL
     Indication: HYPERURICAEMIA
     Dosage: UNK
     Dates: start: 20170331
  6. TESTOGEL [Concomitant]
     Active Substance: TESTOSTERONE
     Indication: LUTEINISING HORMONE DEFICIENCY
     Dosage: UNK
     Dates: start: 20170413
  7. OMNITROPE [Suspect]
     Active Substance: SOMATROPIN
     Indication: GROWTH HORMONE DEFICIENCY
     Dosage: 0.3 MG, QD (1 DF (5 MG/ 1.5 ML))
     Route: 065
     Dates: start: 20170724
  8. OMNITROPE [Suspect]
     Active Substance: SOMATROPIN
     Indication: HYPOPITUITARISM
  9. TESTOGEL [Concomitant]
     Active Substance: TESTOSTERONE
     Indication: FOLLICLE STIMULATING HORMONE DEFICIENCY
  10. VALSARTAN. [Concomitant]
     Active Substance: VALSARTAN
     Indication: HYPERTENSION
     Dosage: UNK
     Dates: start: 20170331

REACTIONS (9)
  - Addison^s disease [Recovered/Resolved]
  - Bradykinesia [Recovered/Resolved]
  - Hypertension [Recovered/Resolved]
  - Urinary tract infection bacterial [Recovered/Resolved]
  - Micturition urgency [Recovered/Resolved]
  - Pyrexia [Recovered/Resolved]
  - Back pain [Recovered/Resolved]
  - Musculoskeletal stiffness [Recovered/Resolved]
  - Disorientation [Recovered/Resolved]

NARRATIVE: CASE EVENT DATE: 20190102
